FAERS Safety Report 5141310-2 (Version None)
Quarter: 2006Q4

REPORT INFORMATION
  Report Type: 
  Country: None (occurrence: None)
  Receive Date: 20061101
  Receipt Date: 20060407
  Transmission Date: 20070319
  Serious: Yes (Hospitalization)
  Sender: FDA-Public Use
  Company Number: FR-ROCHE-443617

PATIENT
  Age: 43 Year
  Sex: Female
  Weight: 75.6 kg

DRUGS (13)
  1. DACLIZUMAB [Suspect]
     Dosage: DOSAGE FORM REPORTED AS INFUSION.
     Route: 042
     Dates: start: 20050824, end: 20050824
  2. DACLIZUMAB [Suspect]
     Dosage: DAY 14.
     Route: 042
     Dates: start: 20050907, end: 20050907
  3. MYCOPHENOLATE MOFETIL [Suspect]
     Route: 048
     Dates: start: 20050824
  4. SIROLIMUS [Suspect]
     Route: 048
     Dates: start: 20051116
  5. CYCLOSPORINE [Suspect]
     Dosage: DOSE REPORTED AS 25 X 2.
     Route: 048
     Dates: start: 20050823, end: 20051121
  6. CORTANCYL [Suspect]
     Route: 048
     Dates: start: 20050823
  7. NOVONORM [Concomitant]
     Dates: start: 20051222
  8. NEXIUM [Concomitant]
     Dosage: TOTAL DAILY DOSE REPORTED AS: 1/J.
     Dates: start: 20050824
  9. CACIT D3 [Concomitant]
     Dosage: TOTAL DAILY DOSE REPORTED AS: 1/J.
     Dates: start: 20051011
  10. TAHOR [Concomitant]
     Dosage: TOTAL DAILY DOSE REPORTED AS: 1/J.
     Dates: start: 20050923
  11. TENORMIN [Concomitant]
     Dosage: TOTAL DAILY DOSE REPORTED AS: 2/J.
     Dates: start: 20050828
  12. XANAX [Concomitant]
     Dosage: TOTAL DAILY DOSE REPORTED AS: 1/J
     Dates: start: 20060427
  13. IMOVANE [Concomitant]
     Dosage: TOTAL DAILY DOSE REPORTED AS: 1/J
     Dates: start: 20060406

REACTIONS (2)
  - PELVIC ABSCESS [None]
  - STAPHYLOCOCCAL INFECTION [None]
